FAERS Safety Report 9844801 (Version 1)
Quarter: 2014Q1

REPORT INFORMATION
  Report Type: Spontaneous
  Country: CA (occurrence: None)
  Receive Date: 20140122
  Receipt Date: 20140122
  Transmission Date: 20141002
  Serious: Yes (Hospitalization)
  Sender: FDA-Public Use
  Company Number: CA-014356

PATIENT
  Age: 77 Year
  Sex: Male

DRUGS (6)
  1. FIRMAGON [Suspect]
     Indication: PROSTATE CANCER
     Route: 058
     Dates: start: 20121001, end: 20121001
  2. CALCIUM [Concomitant]
  3. FOLIC ACID [Concomitant]
  4. MAGNESIUM [Concomitant]
  5. FERROUS GLUCONATE [Concomitant]
  6. PREDNISONE [Concomitant]

REACTIONS (5)
  - Cerebrovascular accident [None]
  - Prostate cancer [None]
  - Metastases to central nervous system [None]
  - Metastases to lung [None]
  - Metastases to lymph nodes [None]
